FAERS Safety Report 10525054 (Version 2)
Quarter: 2014Q4

REPORT INFORMATION
  Report Type: Spontaneous
  Country: US (occurrence: US)
  Receive Date: 20141017
  Receipt Date: 20141113
  Transmission Date: 20150528
  Serious: No
  Sender: FDA-Public Use
  Company Number: US-PFIZER INC-2014281759

PATIENT
  Age: 58 Year
  Sex: Male

DRUGS (1)
  1. XALKORI [Suspect]
     Active Substance: CRIZOTINIB
     Indication: LUNG NEOPLASM MALIGNANT
     Dosage: 250 MG, 2X/DAY (250 MG TWICE DAILY)
     Route: 048
     Dates: start: 20140725

REACTIONS (2)
  - Nausea [Unknown]
  - Peripheral swelling [Unknown]
